FAERS Safety Report 15053812 (Version 2)
Quarter: 2018Q3

REPORT INFORMATION
  Report Type: Spontaneous
  Country: US (occurrence: US)
  Receive Date: 20180622
  Receipt Date: 20180702
  Transmission Date: 20181010
  Serious: No
  Sender: FDA-Public Use
  Company Number: US-TEVA-2018-US-913989

PATIENT

DRUGS (1)
  1. LEVALBUTEROL TARTRATE. [Suspect]
     Active Substance: LEVALBUTEROL TARTRATE

REACTIONS (4)
  - Device issue [Unknown]
  - Incorrect dose administered [Unknown]
  - Product quality issue [Unknown]
  - Drug ineffective [Unknown]
